FAERS Safety Report 23673020 (Version 1)
Quarter: 2024Q1

REPORT INFORMATION
  Report Type: Spontaneous
  Country: US (occurrence: US)
  Receive Date: 20240326
  Receipt Date: 20240326
  Transmission Date: 20240410
  Serious: Yes (Hospitalization, Other)
  Sender: FDA-Public Use
  Company Number: US-TARO PHARMACEUTICALS USA INC.-2024TAR00348

PATIENT
  Age: 4 Decade
  Sex: Male

DRUGS (6)
  1. FELBAMATE [Suspect]
     Active Substance: FELBAMATE
     Indication: Epilepsy
     Dosage: 1500 MG, TID, 62 MG/KG/DAY
     Route: 065
  2. FELBAMATE [Suspect]
     Active Substance: FELBAMATE
     Dosage: 300 MG, TID, 10 MG/KG/DAY
     Route: 065
  3. FELBAMATE [Suspect]
     Active Substance: FELBAMATE
     Dosage: 600 MG, BID, 21 MG/KG/DAY
     Route: 065
  4. LACOSAMIDE [Suspect]
     Active Substance: LACOSAMIDE
     Indication: Epilepsy
     Dosage: UNK
     Route: 065
  5. ZONISAMIDE [Suspect]
     Active Substance: ZONISAMIDE
     Indication: Epilepsy
     Dosage: UNK
     Route: 065
  6. RUFINAMIDE [Suspect]
     Active Substance: RUFINAMIDE
     Indication: Epilepsy
     Dosage: UNK
     Route: 065

REACTIONS (1)
  - Calculus urinary [Unknown]
